FAERS Safety Report 19221399 (Version 3)
Quarter: 2021Q2

REPORT INFORMATION
  Report Type: Report from Study
  Country: KR (occurrence: KR)
  Receive Date: 20210505
  Receipt Date: 20210628
  Transmission Date: 20210717
  Serious: Yes (Other)
  Sender: FDA-Public Use
  Company Number: KR-TAKEDA-2020TUS048698

PATIENT
  Sex: Male

DRUGS (9)
  1. MUCOSTA [Concomitant]
     Active Substance: REBAMIPIDE
     Indication: GASTROINTESTINAL DISORDER
     Dosage: 200 MILLIGRAM
     Route: 048
     Dates: start: 20170613
  2. SIGMART [Concomitant]
     Active Substance: NICORANDIL
     Indication: CORONARY ARTERY DISEASE
     Dosage: 10 MILLIGRAM
     Route: 048
     Dates: start: 20170816
  3. CODENING [Concomitant]
     Indication: EMPHYSEMA
     Dosage: UNK
     Route: 048
     Dates: start: 20181225
  4. NEURONTIN [Concomitant]
     Active Substance: GABAPENTIN
     Indication: HYPOAESTHESIA
     Dosage: 900 MILLIGRAM
     Route: 048
     Dates: start: 20190806
  5. BRIGATINIB [Suspect]
     Active Substance: BRIGATINIB
     Indication: NON-SMALL CELL LUNG CANCER
     Dosage: 90 MILLIGRAM, QD
     Route: 065
     Dates: start: 20201026, end: 20201028
  6. ASPIRIN. [Concomitant]
     Active Substance: ASPIRIN
     Indication: CORONARY ARTERY DISEASE
     Dosage: 100 MILLIGRAM
     Route: 048
     Dates: start: 20170830, end: 20201106
  7. ASPIRIN. [Concomitant]
     Active Substance: ASPIRIN
     Dosage: 100 MILLIGRAM
     Route: 048
     Dates: start: 20201026, end: 20201026
  8. REXIPIN [Concomitant]
     Indication: EMPHYSEMA
     Dosage: 800 MILLIGRAM
     Route: 048
     Dates: start: 20170613
  9. COMBICIN [Concomitant]
     Indication: PNEUMONIA
     Dosage: 9 GRAM
     Route: 042
     Dates: start: 20201021

REACTIONS (5)
  - Hypophosphataemia [Recovered/Resolved]
  - Pneumothorax [Not Recovered/Not Resolved]
  - Pyrexia [Recovered/Resolved]
  - Pneumonia [Recovering/Resolving]
  - Haemoptysis [Recovering/Resolving]

NARRATIVE: CASE EVENT DATE: 20201027
